FAERS Safety Report 5679455-0 (Version None)
Quarter: 2008Q1

REPORT INFORMATION
  Report Type: 
  Country: None (occurrence: None)
  Receive Date: 20080321
  Receipt Date: 20080310
  Transmission Date: 20080703
  Serious: Yes (Other)
  Sender: FDA-Public Use
  Company Number: 2008AL001556

PATIENT
  Age: 77 Year
  Sex: Female

DRUGS (3)
  1. AMLODIPINE BESYLATE [Suspect]
     Dates: start: 20080116, end: 20080303
  2. IRBESARTAN [Concomitant]
  3. ASPIRIN [Concomitant]

REACTIONS (1)
  - FURUNCLE [None]
